FAERS Safety Report 20820847 (Version 5)
Quarter: 2022Q3

REPORT INFORMATION
  Report Type: Spontaneous
  Country: US (occurrence: US)
  Receive Date: 20220512
  Receipt Date: 20220921
  Transmission Date: 20221026
  Serious: No
  Sender: FDA-Public Use
  Company Number: US-PFIZER INC-202200427412

PATIENT
  Age: 69 Year
  Sex: Female

DRUGS (1)
  1. XELJANZ XR [Suspect]
     Active Substance: TOFACITINIB CITRATE
     Dosage: UNK

REACTIONS (8)
  - Dry mouth [Unknown]
  - Headache [Unknown]
  - Contusion [Unknown]
  - Nausea [Unknown]
  - Inflammation [Unknown]
  - Nodule [Unknown]
  - Peripheral swelling [Unknown]
  - Arthralgia [Unknown]
